FAERS Safety Report 9787621 (Version 2)
Quarter: 2014Q4

REPORT INFORMATION
  Report Type: Spontaneous
  Country: SZ (occurrence: None)
  Receive Date: 20131226
  Receipt Date: 20141105
  Transmission Date: 20150529
  Serious: Yes (Congenital Anomaly, Other)
  Sender: FDA-Public Use
  Company Number: AXC-2013-000669

PATIENT
  Age: 0 Day
  Sex: Male
  Weight: 3.2 kg

DRUGS (8)
  1. URSODEOXYCHOLIC ACID [Suspect]
     Active Substance: URSODIOL
     Indication: FOETAL EXPOSURE DURING PREGNANCY
     Route: 064
     Dates: start: 20121110
  2. FRAGMIN [Suspect]
     Active Substance: DALTEPARIN SODIUM
     Indication: FOETAL EXPOSURE DURING PREGNANCY
     Dosage: 5000 USP, QD, TRANSPLACENTAL
     Route: 064
     Dates: start: 20130607, end: 20130609
  3. MAGNESIOCARD [Suspect]
     Active Substance: MAGNESIUM ASPARTATE HYDROCHLORIDE
     Indication: FOETAL EXPOSURE DURING PREGNANCY
     Route: 064
     Dates: start: 20130610
  4. ADALAT CC [Suspect]
     Active Substance: NIFEDIPINE
     Indication: FOETAL EXPOSURE DURING PREGNANCY
     Route: 064
     Dates: start: 20130610, end: 20130619
  5. ELTROXIN [Suspect]
     Active Substance: LEVOTHYROXINE
     Indication: FOETAL EXPOSURE DURING PREGNANCY
     Route: 064
     Dates: start: 2012
  6. ADALAT CC [Suspect]
     Active Substance: NIFEDIPINE
     Indication: FOETAL EXPOSURE DURING PREGNANCY
     Route: 064
     Dates: start: 20130607, end: 20130610
  7. GYNO-TARDYFERON (ASCORBIC ACID, FERROUS SULFATE, FOLIC ACID, PROTEASE) FILM-COATED TABLET [Concomitant]
  8. BUSCOPAN [Suspect]
     Active Substance: BUTYLSCOPOLAMINE BROMIDE
     Indication: FOETAL EXPOSURE DURING PREGNANCY
     Dosage: UNK, TRANSPLACENTAL
     Route: 064
     Dates: start: 20130510

REACTIONS (5)
  - Congenital foot malformation [None]
  - Foetal exposure during pregnancy [None]
  - Jaundice neonatal [None]
  - ABO incompatibility [None]
  - Caesarean section [None]

NARRATIVE: CASE EVENT DATE: 20130716
